FAERS Safety Report 10290040 (Version 1)
Quarter: 2014Q3

REPORT INFORMATION
  Report Type: Spontaneous
  Country: ES (occurrence: None)
  Receive Date: 20140708
  Receipt Date: 20140708
  Transmission Date: 20150326
  Serious: Yes (Hospitalization, Other)
  Sender: FDA-Public Use
  Company Number: ADR-2014-01167

PATIENT
  Age: 66 Year
  Sex: Female

DRUGS (9)
  1. ACETYLSALICYLIC ACID [Suspect]
     Active Substance: ASPIRIN
     Dates: start: 2008
  2. FOSFOMYCIN [Suspect]
     Active Substance: FOSFOMYCIN
     Dates: start: 20121220
  3. SOLIFENACIN [Suspect]
     Active Substance: SOLIFENACIN
     Indication: PROPHYLAXIS
  4. OMEPRAZOLE (OMEPRAZOLE) [Suspect]
     Active Substance: OMEPRAZOLE
     Dates: start: 2008
  5. BACLOFEN ORAL [Suspect]
     Active Substance: BACLOFEN
     Indication: MUSCLE SPASMS
     Dates: start: 1995
  6. SOLIFENACIN [Suspect]
     Active Substance: SOLIFENACIN
     Indication: URINARY INCONTINENCE
     Dates: start: 2008
  7. LORAZEPAM (LORAZEPAM) [Suspect]
     Active Substance: LORAZEPAM
     Dates: start: 2008
  8. SOLIFENACIN [Suspect]
     Active Substance: SOLIFENACIN
     Indication: URINARY INCONTINENCE
  9. BIMATOPROST [Suspect]
     Active Substance: BIMATOPROST
     Dates: start: 2009

REACTIONS (9)
  - Disorientation [None]
  - Confusional state [None]
  - Dysarthria [None]
  - Dystonia [None]
  - Loss of consciousness [None]
  - Urinary tract infection [None]
  - Encephalitis [None]
  - Dry mouth [None]
  - Infection [None]
